FAERS Safety Report 9001085 (Version 2)
Quarter: 2013Q2

REPORT INFORMATION
  Report Type: Spontaneous
  Country: US (occurrence: None)
  Receive Date: 20121226
  Receipt Date: 20130429
  Transmission Date: 20140414
  Serious: Yes (Hospitalization)
  Sender: FDA-Public Use
  Company Number: ACO_33419_2012

PATIENT
  Age: 55 Year
  Sex: Female

DRUGS (15)
  1. AMPYRA [Suspect]
     Indication: PRODUCT USED FOR UNKNOWN INDICATION
     Dates: start: 201207, end: 20120930
  2. CYMBALTA [Concomitant]
  3. LUMIGAN (BIMATOPROST) [Concomitant]
  4. ZOLPIDEM TARTRATE (ZOLPIDEM TARTRATE) [Concomitant]
  5. TOVIAZ (FESOTERODINE FUMARATE) [Concomitant]
  6. SIMVASTATIN (SIMVASTATIN) [Concomitant]
  7. MELOXICAM (MELOXICAM) [Concomitant]
  8. GABAPENTIN (GABAPENTIN) [Concomitant]
  9. BACLOFEN [Concomitant]
  10. TRAZODONE (TRAZODONE HYDROCHLORIDE) [Concomitant]
  11. FELODIPINE (FELODIPINE) [Concomitant]
  12. OMNARIS (CICLESONIDE) [Concomitant]
  13. COPAXONE [Suspect]
     Route: 058
     Dates: start: 20030512
  14. VICODIN (HYDROCODONE BITARTRATE, PARACETAMOL) [Concomitant]
  15. ALL OTHER THERAPEUTIC PRODUCTS [Concomitant]

REACTIONS (11)
  - Loss of consciousness [None]
  - Tremor [None]
  - Head titubation [None]
  - Fibula fracture [None]
  - Tibia fracture [None]
  - Eye movement disorder [None]
  - Chest discomfort [None]
  - Urticaria [None]
  - Fall [None]
  - Dizziness [None]
  - Chest discomfort [None]
